FAERS Safety Report 8103668-1 (Version None)
Quarter: 2012Q1

REPORT INFORMATION
  Report Type: 
  Country: None (occurrence: None)
  Receive Date: 20120201
  Receipt Date: 20120118
  Transmission Date: 20120608
  Serious: Yes (Other)
  Sender: FDA-Public Use
  Company Number: FR-CELGENEUS-056-21880-11101742

PATIENT
  Sex: Male
  Weight: 89 kg

DRUGS (41)
  1. RITUXIMAB [Suspect]
     Dosage: 750 MILLIGRAM
     Route: 041
     Dates: start: 20110517, end: 20110517
  2. RITUXIMAB [Suspect]
     Route: 041
     Dates: end: 20110901
  3. CYCLOPHOSPHAMIDE [Suspect]
     Indication: B-CELL LYMPHOMA
     Dosage: 1500 MILLIGRAM
     Route: 041
     Dates: start: 20110201, end: 20110201
  4. DOXORUBICIN HCL [Suspect]
     Dosage: 100 MILLIGRAM
     Route: 041
     Dates: start: 20110426, end: 20110426
  5. NEULASTA [Concomitant]
     Route: 065
     Dates: start: 20110318, end: 20110318
  6. NEULASTA [Concomitant]
     Route: 065
     Dates: start: 20110408, end: 20110408
  7. VALACYCLOVIR HYDROCHLORIDE [Concomitant]
     Dosage: 1000 MILLIGRAM
     Route: 065
     Dates: start: 20110131, end: 20110811
  8. REVLIMID [Suspect]
     Dosage: 25 MILLIGRAM
     Route: 048
     Dates: start: 20110517, end: 20110530
  9. VINCRISTINE [Suspect]
     Dosage: 2 MILLIGRAM
     Route: 041
     Dates: start: 20110315, end: 20110315
  10. VINCRISTINE [Suspect]
     Dosage: 2 MILLIGRAM
     Route: 041
     Dates: start: 20110426, end: 20110426
  11. DOXORUBICIN HCL [Suspect]
     Dosage: 100 MILLIGRAM
     Route: 041
     Dates: start: 20110517, end: 20110517
  12. NEULASTA [Concomitant]
     Dosage: 6 MILLIGRAM
     Route: 065
     Dates: start: 20110204, end: 20110204
  13. NEULASTA [Concomitant]
     Route: 065
     Dates: start: 20110225, end: 20110225
  14. RITUXIMAB [Suspect]
     Indication: B-CELL LYMPHOMA
     Dosage: 750 MILLIGRAM
     Route: 041
     Dates: start: 20110201, end: 20110201
  15. RITUXIMAB [Suspect]
     Dosage: 750 MILLIGRAM
     Route: 041
     Dates: start: 20110222, end: 20110222
  16. PREDNISOLONE [Suspect]
     Indication: B-CELL LYMPHOMA
     Dosage: 400 MILLIGRAM
     Route: 048
     Dates: start: 20110201
  17. CYCLOPHOSPHAMIDE [Suspect]
     Dosage: 1500 MILLIGRAM
     Route: 041
     Dates: start: 20110315, end: 20110315
  18. CYCLOPHOSPHAMIDE [Suspect]
     Dosage: 1500 MILLIGRAM
     Route: 041
     Dates: start: 20110426, end: 20110426
  19. DOXORUBICIN HCL [Suspect]
     Dosage: 100 MILLIGRAM
     Route: 041
     Dates: start: 20110315, end: 20110315
  20. SERETID [Concomitant]
     Indication: ASTHMA
     Route: 065
     Dates: start: 20110520, end: 20110809
  21. REVLIMID [Suspect]
     Indication: B-CELL LYMPHOMA
     Dosage: 25 MILLIGRAM
     Route: 048
     Dates: start: 20110201, end: 20110214
  22. RITUXIMAB [Suspect]
     Dosage: 750 MILLIGRAM
     Route: 041
     Dates: start: 20110426, end: 20110426
  23. RITUXIMAB [Suspect]
     Dosage: 750 MILLIGRAM
     Route: 041
     Dates: start: 20110607, end: 20110607
  24. RITUXIMAB [Suspect]
     Dosage: 750 MILLIGRAM
     Route: 041
     Dates: start: 20110629, end: 20110629
  25. VINCRISTINE [Suspect]
     Dosage: 2 MILLIGRAM
     Route: 041
     Dates: start: 20110517, end: 20110517
  26. DOXORUBICIN HCL [Suspect]
     Indication: B-CELL LYMPHOMA
     Dosage: 100 MILLIGRAM
     Route: 041
     Dates: start: 20110201, end: 20110201
  27. CYCLOPHOSPHAMIDE [Suspect]
     Dosage: 1500 MILLIGRAM
     Route: 041
     Dates: start: 20110517, end: 20110517
  28. DOXORUBICIN HCL [Suspect]
     Dosage: 100 MILLIGRAM
     Route: 041
     Dates: start: 20110222, end: 20110222
  29. NEXIUM [Concomitant]
     Dosage: 40 MILLIGRAM
     Route: 065
     Dates: start: 20110202, end: 20110809
  30. METHYLPREDNISOLONE [Suspect]
     Indication: B-CELL LYMPHOMA
     Route: 041
     Dates: start: 20110201, end: 20110517
  31. RITUXIMAB [Suspect]
     Dosage: 750 MILLIGRAM
     Route: 041
     Dates: start: 20110315, end: 20110315
  32. RITUXIMAB [Suspect]
     Dosage: 750 MILLIGRAM
     Route: 041
     Dates: start: 20110405, end: 20110405
  33. VINCRISTINE [Suspect]
     Dosage: 2 MILLIGRAM
     Route: 041
     Dates: start: 20110222, end: 20110222
  34. PREDNISOLONE [Suspect]
     Route: 048
     Dates: start: 20110517
  35. VINCRISTINE [Suspect]
     Dosage: 2 MILLIGRAM
     Route: 041
     Dates: start: 20110405, end: 20110405
  36. DOXORUBICIN HCL [Suspect]
     Dosage: 100 MILLIGRAM
     Route: 041
     Dates: start: 20110405, end: 20110405
  37. NEULASTA [Concomitant]
     Route: 065
     Dates: start: 20110502, end: 20110502
  38. VINCRISTINE [Suspect]
     Indication: B-CELL LYMPHOMA
     Dosage: 2 MILLIGRAM
     Route: 041
     Dates: start: 20110201, end: 20110201
  39. CYCLOPHOSPHAMIDE [Suspect]
     Dosage: 1500 MILLIGRAM
     Route: 041
     Dates: start: 20110222, end: 20110222
  40. CYCLOPHOSPHAMIDE [Suspect]
     Dosage: 1500 MILLIGRAM
     Route: 041
     Dates: start: 20110405, end: 20110405
  41. NEULASTA [Concomitant]
     Route: 065
     Dates: start: 20110520, end: 20110520

REACTIONS (1)
  - TONSIL CANCER [None]
